FAERS Safety Report 6936614 (Version 4)
Quarter: 2012Q4

REPORT INFORMATION
  Report Type: 
  Country: US (occurrence: US)
  Receive Date: 20090121
  Receipt Date: 20121010
  Transmission Date: 20130627
  Serious: Yes (Other)
  Sender: FDA-Public Use
  Company Number: US-PFIZER INC-US-WYE-H05153208

PATIENT
  Age: 55 Year
  Sex: Female

DRUGS (5)
  1. PREMPRO [Suspect]
     Indication: HORMONE REPLACEMENT THERAPY
     Dosage: 0.625/5 mg, UNK
     Route: 048
     Dates: start: 19981228, end: 19991118
  2. PREMPRO [Suspect]
     Dosage: 0.625/2.5 mg, UNK
     Route: 048
     Dates: start: 19991118, end: 20010125
  3. PROVERA [Suspect]
     Indication: HORMONE REPLACEMENT THERAPY
     Dosage: 10 mg, UNK
     Route: 048
     Dates: start: 19980615, end: 19981228
  4. PREMARIN [Suspect]
     Indication: HORMONE REPLACEMENT THERAPY
     Dosage: 0.625 mg, UNK
     Route: 048
     Dates: start: 19980615, end: 19981228
  5. AYGESTIN [Suspect]
     Indication: HORMONE REPLACEMENT THERAPY
     Dosage: 5 mg, UNK
     Route: 048
     Dates: start: 19970703, end: 19980615

REACTIONS (1)
  - Breast cancer female [Unknown]
